FAERS Safety Report 8260360-0 (Version None)
Quarter: 2012Q2

REPORT INFORMATION
  Report Type: 
  Country: None (occurrence: None)
  Receive Date: 20120404
  Receipt Date: 20120321
  Transmission Date: 20120825
  Serious: Yes (Other)
  Sender: FDA-Public Use
  Company Number: AR-ROCHE-1054980

PATIENT
  Sex: Female

DRUGS (1)
  1. LUCENTIS [Suspect]
     Indication: MACULOPATHY
     Dosage: DOSE : 1 AMPOULE
     Dates: start: 20110301

REACTIONS (5)
  - ANXIETY [None]
  - BLINDNESS [None]
  - RETINAL DETACHMENT [None]
  - STRESS [None]
  - CONDITION AGGRAVATED [None]
